FAERS Safety Report 8163127-7 (Version None)
Quarter: 2012Q1

REPORT INFORMATION
  Report Type: 
  Country: None (occurrence: None)
  Receive Date: 20120221
  Receipt Date: 20120210
  Transmission Date: 20120608
  Serious: Yes (Death)
  Sender: FDA-Public Use
  Company Number: 2012SP007736

PATIENT
  Age: 75 Year
  Sex: Male

DRUGS (6)
  1. CLARITIN [Suspect]
     Indication: PRURITUS
     Dosage: 10 MG; QD; PO
     Route: 048
     Dates: start: 20111006, end: 20111117
  2. IRBESARTAN [Concomitant]
  3. CORINAEL [Concomitant]
  4. JANUVIA (SITAGLIPTIN PHOSPHATE HYDRATE) [Concomitant]
  5. LOCHOLEST [Concomitant]
  6. AMARYL [Concomitant]

REACTIONS (3)
  - CONDITION AGGRAVATED [None]
  - INTERSTITIAL LUNG DISEASE [None]
  - THROMBOCYTOPENIA [None]
